FAERS Safety Report 19946108 (Version 1)
Quarter: 2021Q4

REPORT INFORMATION
  Report Type: Report from Study
  Country: US (occurrence: US)
  Receive Date: 20211012
  Receipt Date: 20211012
  Transmission Date: 20220303
  Serious: Yes (Hospitalization)
  Sender: FDA-Public Use
  Company Number: US-GW PHARMA-202109USGW04702

PATIENT

DRUGS (2)
  1. EPIDIOLEX [Suspect]
     Active Substance: CANNABIDIOL
     Indication: Lennox-Gastaut syndrome
     Dosage: UNK DOSE, 3 TIMES PER DAY
     Route: 048
     Dates: end: 20210924
  2. EPIDIOLEX [Suspect]
     Active Substance: CANNABIDIOL
     Dosage: REDUCED DOSE
     Route: 048
     Dates: start: 2021

REACTIONS (7)
  - Status epilepticus [Not Recovered/Not Resolved]
  - Respiratory failure [Not Recovered/Not Resolved]
  - Off label use [Unknown]
  - Product container issue [Unknown]
  - Insurance issue [Unknown]
  - Product dose omission issue [Unknown]
  - Intentional underdose [Unknown]

NARRATIVE: CASE EVENT DATE: 20210924
